FAERS Safety Report 10900308 (Version 4)
Quarter: 2015Q2

REPORT INFORMATION
  Report Type: Spontaneous
  Country: US (occurrence: US)
  Receive Date: 20150310
  Receipt Date: 20150504
  Transmission Date: 20150821
  Serious: Yes (Hospitalization)
  Sender: FDA-Public Use
  Company Number: US-BIOGENIDEC-2015BI028598

PATIENT
  Age: 57 Year
  Sex: Female

DRUGS (1)
  1. AVONEX [Suspect]
     Active Substance: INTERFERON BETA-1A
     Indication: MULTIPLE SCLEROSIS
     Route: 030
     Dates: start: 20131122

REACTIONS (7)
  - Peptic ulcer [Not Recovered/Not Resolved]
  - Confusional state [Unknown]
  - Fall [Recovered/Resolved]
  - Urinary tract infection [Unknown]
  - Hypertension [Unknown]
  - Multiple sclerosis [Unknown]
  - Headache [Unknown]

NARRATIVE: CASE EVENT DATE: 20140215
